FAERS Safety Report 7928294-6 (Version None)
Quarter: 2011Q4

REPORT INFORMATION
  Report Type: 
  Country: None (occurrence: None)
  Receive Date: 20111118
  Receipt Date: 20111114
  Transmission Date: 20120403
  Serious: Yes (Hospitalization)
  Sender: FDA-Public Use
  Company Number: US-JNJFOC-20111106074

PATIENT

DRUGS (2)
  1. PSEUDOEPHEDRINE HCL [Suspect]
     Indication: PRODUCT USED FOR UNKNOWN INDICATION
     Route: 048
  2. PSEUDOEPHEDRINE HCL [Suspect]
     Route: 048

REACTIONS (1)
  - TACHYCARDIA [None]
